FAERS Safety Report 5723791-6 (Version None)
Quarter: 2008Q2

REPORT INFORMATION
  Report Type: 
  Country: None (occurrence: None)
  Receive Date: 20080429
  Receipt Date: 20080429
  Transmission Date: 20081010
  Serious: Yes (Other)
  Sender: FDA-Public Use
  Company Number: None

PATIENT
  Age: 49 Year
  Sex: Female
  Weight: 88.4514 kg

DRUGS (1)
  1. CYMBALTA [Suspect]
     Indication: FIBROMYALGIA
     Dosage: 30MG 1X/DAY PO
     Route: 048
     Dates: start: 20080201, end: 20080422

REACTIONS (9)
  - BLOOD PRESSURE INCREASED [None]
  - DIZZINESS [None]
  - HEADACHE [None]
  - HYPERHIDROSIS [None]
  - INFLUENZA [None]
  - NAUSEA [None]
  - NIGHTMARE [None]
  - SENSORY DISTURBANCE [None]
  - THINKING ABNORMAL [None]
